FAERS Safety Report 6725938 (Version 8)
Quarter: 2015Q2

REPORT INFORMATION
  Report Type: Spontaneous
  Country: US (occurrence: US)
  Receive Date: 20080813
  Receipt Date: 20150603
  Transmission Date: 20150821
  Serious: Yes (Life-Threatening, Hospitalization, Other)
  Sender: FDA-Public Use
  Company Number: US-ASTRAZENECA-2008UW15622

PATIENT
  Age: 512 Month
  Sex: Female
  Weight: 104.3 kg

DRUGS (39)
  1. SEROQUEL [Suspect]
     Active Substance: QUETIAPINE FUMARATE
     Indication: POST-TRAUMATIC STRESS DISORDER
     Route: 048
     Dates: start: 2004
  2. SEROQUEL [Suspect]
     Active Substance: QUETIAPINE FUMARATE
     Indication: BIPOLAR DISORDER
     Route: 048
     Dates: start: 2004
  3. ZOLOFT [Suspect]
     Active Substance: SERTRALINE HYDROCHLORIDE
     Indication: BIPOLAR DISORDER
     Route: 048
     Dates: end: 20051230
  4. LORAZEPAM. [Suspect]
     Active Substance: LORAZEPAM
     Indication: SEIZURE
     Route: 048
     Dates: start: 20051230
  5. PENICILLIN [Suspect]
     Active Substance: PENICILLIN
     Route: 048
  6. SULFA [Suspect]
     Active Substance: UNSPECIFIED INGREDIENT
     Route: 048
  7. LEVOTHYROXINE [Suspect]
     Active Substance: LEVOTHYROXINE
     Route: 048
  8. PRILOSEC [Suspect]
     Active Substance: OMEPRAZOLE MAGNESIUM
     Indication: GASTROOESOPHAGEAL REFLUX DISEASE
     Route: 048
  9. SEROQUEL [Suspect]
     Active Substance: QUETIAPINE FUMARATE
     Indication: BIPOLAR DISORDER
     Route: 048
  10. SEROQUEL [Suspect]
     Active Substance: QUETIAPINE FUMARATE
     Indication: BIPOLAR DISORDER
     Dosage: 25 MG, 2 OR 4 TIMES A DAY,
     Route: 048
     Dates: start: 2004
  11. AZITHROMYCIN [Suspect]
     Active Substance: AZITHROMYCIN ANHYDROUS
     Indication: SINUSITIS
     Route: 048
  12. PRILOSEC [Suspect]
     Active Substance: OMEPRAZOLE MAGNESIUM
     Indication: GASTROOESOPHAGEAL REFLUX DISEASE
     Route: 048
     Dates: end: 20051230
  13. HYDROCORTISONE. [Suspect]
     Active Substance: HYDROCORTISONE
     Dosage: NON AZ PRODUCT
     Route: 048
  14. TOPAMAX [Interacting]
     Active Substance: TOPIRAMATE
     Indication: GENERALISED TONIC-CLONIC SEIZURE
     Route: 048
  15. MAGNESIUM [Suspect]
     Active Substance: MAGNESIUM
     Route: 048
  16. COMPAZINE [Suspect]
     Active Substance: PROCHLORPERAZINE MALEATE
     Route: 048
  17. PRISTINE [Concomitant]
  18. PRILOSEC OTC [Suspect]
     Active Substance: OMEPRAZOLE MAGNESIUM
     Dosage: APPROXIMATELY FOR 10 DAYS
     Route: 048
     Dates: start: 2005, end: 2005
  19. SEROQUEL [Suspect]
     Active Substance: QUETIAPINE FUMARATE
     Indication: POST-TRAUMATIC STRESS DISORDER
     Route: 048
  20. ZOLOFT [Suspect]
     Active Substance: SERTRALINE HYDROCHLORIDE
     Indication: BIPOLAR DISORDER
     Route: 048
     Dates: start: 2004, end: 2005
  21. MECLIZINE [Interacting]
     Active Substance: MECLIZINE\MECLIZINE HYDROCHLORIDE
     Indication: DIZZINESS
     Route: 048
     Dates: start: 2004, end: 20051230
  22. NASONEX [Interacting]
     Active Substance: MOMETASONE FUROATE
     Route: 048
  23. PROMETHAZINE [Suspect]
     Active Substance: PROMETHAZINE\PROMETHAZINE HYDROCHLORIDE
     Route: 065
  24. AUGMENTIN [Suspect]
     Active Substance: AMOXICILLIN\CLAVULANATE POTASSIUM
     Route: 048
  25. BACTRIM [Suspect]
     Active Substance: SULFAMETHOXAZOLE\TRIMETHOPRIM
     Route: 048
  26. RANOXYL [Concomitant]
  27. UNSPECIFIED THYROID MEDICATION [Interacting]
     Active Substance: UNSPECIFIED INGREDIENT
     Indication: THYROID DISORDER
     Route: 048
  28. MACROBID [Suspect]
     Active Substance: NITROFURANTOIN\NITROFURANTOIN MONOHYDRATE
     Route: 048
  29. SEROQUEL [Suspect]
     Active Substance: QUETIAPINE FUMARATE
     Indication: POST-TRAUMATIC STRESS DISORDER
     Route: 048
     Dates: start: 2004, end: 20051230
  30. SEROQUEL [Suspect]
     Active Substance: QUETIAPINE FUMARATE
     Indication: POST-TRAUMATIC STRESS DISORDER
     Route: 048
  31. SEROQUEL [Suspect]
     Active Substance: QUETIAPINE FUMARATE
     Indication: POST-TRAUMATIC STRESS DISORDER
     Dosage: 25 MG, 2 OR 4 TIMES A DAY,
     Route: 048
     Dates: start: 2004
  32. POTASSIUM CHLORIDE. [Suspect]
     Active Substance: POTASSIUM CHLORIDE
     Indication: HYPOKALAEMIA
     Dosage: 10 MED
     Route: 048
     Dates: start: 2004, end: 2005
  33. FUROSEMIDE. [Suspect]
     Active Substance: FUROSEMIDE
     Route: 048
  34. HYDROCODONE [Suspect]
     Active Substance: HYDROCODONE
     Route: 048
  35. SEROQUEL [Suspect]
     Active Substance: QUETIAPINE FUMARATE
     Indication: BIPOLAR DISORDER
     Route: 048
     Dates: start: 2004, end: 20051230
  36. SEROQUEL [Suspect]
     Active Substance: QUETIAPINE FUMARATE
     Indication: BIPOLAR DISORDER
     Route: 048
  37. ERYTHROMYCIN. [Interacting]
     Active Substance: ERYTHROMYCIN
     Route: 048
  38. LORAZEPAM. [Suspect]
     Active Substance: LORAZEPAM
     Indication: SEIZURE
     Route: 048
  39. SYNTHROID [Suspect]
     Active Substance: LEVOTHYROXINE SODIUM
     Route: 048

REACTIONS (37)
  - Overdose [Unknown]
  - Craniocerebral injury [Unknown]
  - Head injury [Unknown]
  - Haemorrhoids [Unknown]
  - Pain in extremity [Unknown]
  - Total lung capacity decreased [Unknown]
  - Vomiting [Unknown]
  - Dermatitis [Unknown]
  - Post-traumatic stress disorder [Not Recovered/Not Resolved]
  - Hypersensitivity [Unknown]
  - Abdominal discomfort [Unknown]
  - Pain [Unknown]
  - Blood potassium decreased [Unknown]
  - Vertigo [Unknown]
  - Sinusitis [Unknown]
  - Fungal infection [Unknown]
  - Fall [Unknown]
  - Calcinosis [Unknown]
  - Hearing impaired [Unknown]
  - Diverticulum [Unknown]
  - Nausea [Unknown]
  - Abnormal behaviour [Unknown]
  - Coma [Unknown]
  - Seizure [Unknown]
  - Drug hypersensitivity [Unknown]
  - Inflammation [Unknown]
  - Off label use [Unknown]
  - Hypertension [Unknown]
  - Cardiac failure [Unknown]
  - Generalised tonic-clonic seizure [Not Recovered/Not Resolved]
  - Weight decreased [Unknown]
  - Adverse drug reaction [Unknown]
  - Drug interaction [Unknown]
  - Electroencephalogram abnormal [Unknown]
  - Neuroleptic malignant syndrome [Unknown]
  - Localised infection [Not Recovered/Not Resolved]
  - Dizziness [Unknown]

NARRATIVE: CASE EVENT DATE: 200512
